FAERS Safety Report 18296245 (Version 1)
Quarter: 2020Q3

REPORT INFORMATION
  Report Type: Spontaneous
  Country: US (occurrence: US)
  Receive Date: 20200922
  Receipt Date: 20200922
  Transmission Date: 20201103
  Serious: No
  Sender: FDA-Public Use
  Company Number: US-VIVUS, INC.-2019V1001168

PATIENT
  Age: 42 Year
  Sex: Female
  Weight: 93.52 kg

DRUGS (3)
  1. QSYMIA [Suspect]
     Active Substance: PHENTERMINE HYDROCHLORIDE\TOPIRAMATE
     Indication: WEIGHT DECREASED
     Route: 048
     Dates: start: 201908
  2. QSYMIA [Suspect]
     Active Substance: PHENTERMINE HYDROCHLORIDE\TOPIRAMATE
     Indication: WEIGHT DECREASED
     Route: 048
  3. LOSARTAN. [Concomitant]
     Active Substance: LOSARTAN
     Indication: HYPERTENSION
     Route: 048

REACTIONS (10)
  - Dyspnoea [Not Recovered/Not Resolved]
  - Anxiety [Not Recovered/Not Resolved]
  - Chest pain [Not Recovered/Not Resolved]
  - Dry mouth [Not Recovered/Not Resolved]
  - Muscle spasms [Not Recovered/Not Resolved]
  - Paraesthesia [Not Recovered/Not Resolved]
  - Limb discomfort [Not Recovered/Not Resolved]
  - Pain in extremity [Not Recovered/Not Resolved]
  - Hypoaesthesia [Not Recovered/Not Resolved]
  - Myalgia [Not Recovered/Not Resolved]

NARRATIVE: CASE EVENT DATE: 201908
